FAERS Safety Report 12985855 (Version 1)
Quarter: 2016Q4

REPORT INFORMATION
  Report Type: Spontaneous
  Country: US (occurrence: US)
  Receive Date: 20161130
  Receipt Date: 20161130
  Transmission Date: 20170207
  Serious: No
  Sender: FDA-Public Use
  Company Number: US-009507513-1611USA004378

PATIENT
  Sex: Female
  Weight: 104.31 kg

DRUGS (2)
  1. NEXPLANON [Suspect]
     Active Substance: ETONOGESTREL
     Dosage: 68 MG/1 ROD, EVERY 3 YEARS
     Route: 059
     Dates: start: 20131125, end: 20161102
  2. NEXPLANON [Suspect]
     Active Substance: ETONOGESTREL
     Dosage: 68 MG/1 ROD, EVERY 3 YEARS
     Route: 059
     Dates: start: 20161102

REACTIONS (2)
  - Device breakage [Recovered/Resolved]
  - No adverse event [Unknown]
